FAERS Safety Report 21714858 (Version 1)
Quarter: 2022Q4

REPORT INFORMATION
  Report Type: Spontaneous
  Country: US (occurrence: None)
  Receive Date: 20221210
  Receipt Date: 20221210
  Transmission Date: 20230113
  Serious: Yes (Other)
  Sender: FDA-Public Use
  Company Number: None

PATIENT
  Age: 61 Year
  Sex: Female
  Weight: 71.1 kg

DRUGS (7)
  1. HYDROQUINONE [Suspect]
     Active Substance: HYDROQUINONE
     Indication: Skin hyperpigmentation
     Dosage: OTHER STRENGTH : 4%;?OTHER QUANTITY : 1 APPLICATION;?FREQUENCY : AT BEDTIME;?
     Route: 061
     Dates: start: 20221207, end: 20221209
  2. GLUCOSAMINE [Concomitant]
     Active Substance: GLUCOSAMINE
  3. CALCIUM\VITAMIN D [Concomitant]
     Active Substance: CALCIUM\VITAMIN D
  4. VITAMIN D [Concomitant]
     Active Substance: VITAMIN D NOS
  5. psyllium (fiber) capsules [Concomitant]
  6. DIETARY SUPPLEMENT [Concomitant]
     Active Substance: DIETARY SUPPLEMENT
  7. turmeric. [Concomitant]

REACTIONS (3)
  - Dizziness [None]
  - Vomiting [None]
  - Headache [None]

NARRATIVE: CASE EVENT DATE: 20221209
